FAERS Safety Report 6032987-8 (Version None)
Quarter: 2009Q1

REPORT INFORMATION
  Report Type: 
  Country: None (occurrence: None)
  Receive Date: 20090109
  Receipt Date: 20090106
  Transmission Date: 20090719
  Serious: Yes (Life-Threatening)
  Sender: FDA-Public Use
  Company Number: B0549205A

PATIENT
  Age: 44 Year
  Sex: Female

DRUGS (1)
  1. AUGMENTIN '125' [Suspect]
     Dosage: 1TAB SINGLE DOSE
     Route: 048
     Dates: start: 20081127, end: 20081127

REACTIONS (2)
  - FACE OEDEMA [None]
  - LOCALISED OEDEMA [None]
